FAERS Safety Report 9030550 (Version 1)
Quarter: 2013Q1

REPORT INFORMATION
  Report Type: Report from Study
  Country: DE (occurrence: DE)
  Receive Date: 20130122
  Receipt Date: 20130122
  Transmission Date: 20140127
  Serious: Yes (Hospitalization)
  Sender: FDA-Public Use
  Company Number: DE-PFIZER INC-2013020386

PATIENT
  Sex: Male

DRUGS (17)
  1. DOXORUBICIN HCL [Suspect]
     Indication: B-CELL LYMPHOMA
     Dosage: 300 MG, UNK
     Route: 042
     Dates: start: 20121002
  2. RITUXIMAB [Suspect]
     Indication: B-CELL LYMPHOMA
     Dosage: UNK
     Route: 042
     Dates: start: 20121001
  3. RITUXIMAB [Suspect]
     Dosage: 770 MG, UNK
     Route: 042
     Dates: start: 20121227, end: 20121227
  4. VINCRISTINE [Suspect]
     Indication: B-CELL LYMPHOMA
     Dosage: 2 MG, UNK
     Route: 042
     Dates: start: 20121002
  5. VINCRISTINE [Suspect]
     Dosage: 2 MG, 1X/DAY
     Route: 042
     Dates: start: 20121228, end: 20121228
  6. PEGFILGRASTIM [Suspect]
     Indication: B-CELL LYMPHOMA
     Dosage: 6 MG, 1X/DAY
     Route: 058
     Dates: start: 20121005
  7. PEGFILGRASTIM [Suspect]
     Dosage: 6 MG, UNK
     Route: 058
     Dates: start: 20121231, end: 20121231
  8. PREDNISOLONE [Suspect]
     Indication: B-CELL LYMPHOMA
     Dosage: 100 MG, UNK
     Route: 048
     Dates: start: 20121002
  9. PREDNISOLONE [Suspect]
     Dosage: 100 MG, UNK
     Route: 048
     Dates: start: 20121228, end: 20130101
  10. CYCLOPHOSPHAMIDE [Suspect]
     Indication: B-CELL LYMPHOMA
     Dosage: 1550 MG, UNK
     Route: 042
     Dates: start: 20121002
  11. TRIMETHOPRIM SULFATE [Concomitant]
     Indication: PROPHYLAXIS
     Route: 048
  12. AMPHOTERICIN B [Concomitant]
     Indication: PROPHYLAXIS
     Route: 048
  13. OMEPRAZOLE [Concomitant]
     Dosage: 20 MG, 1X/DAY
     Route: 048
     Dates: start: 20120924
  14. ALLOPURINOL [Concomitant]
     Dosage: 10 MG, 1X/DAY
     Route: 048
     Dates: start: 20120926
  15. ALLOPURINOL [Concomitant]
     Dosage: UNK
     Route: 048
     Dates: start: 20130106
  16. ACICLOVIR [Concomitant]
     Indication: PROPHYLAXIS
     Dosage: 400 MG, 3X/DAY
     Route: 048
     Dates: start: 20120926
  17. ACICLOVIR [Concomitant]
     Dosage: 200 MG, 2X/DAY
     Route: 048

REACTIONS (1)
  - Bronchitis [Recovering/Resolving]
